FAERS Safety Report 16110255 (Version 1)
Quarter: 2019Q1

REPORT INFORMATION
  Report Type: Spontaneous
  Country: US (occurrence: US)
  Receive Date: 20190220
  Receipt Date: 20190220
  Transmission Date: 20190418
  Serious: Yes (Hospitalization)
  Sender: FDA-Public Use
  Company Number: None

PATIENT
  Age: 66 Year
  Sex: Female

DRUGS (1)
  1. BOTOX [Suspect]
     Active Substance: ONABOTULINUMTOXINA
     Indication: POLLAKIURIA
     Dosage: OTHER FREQUENCY:EVERY 3 MONTHS; AS DIRECTED FOR BLADDER INJECTION?
     Dates: start: 20160819, end: 20181030

REACTIONS (1)
  - Muscle spasms [None]
